FAERS Safety Report 6986619-2 (Version None)
Quarter: 2010Q3

REPORT INFORMATION
  Report Type: 
  Country: None (occurrence: None)
  Receive Date: 20100827
  Receipt Date: 20100323
  Transmission Date: 20110219
  Serious: Yes (Hospitalization)
  Sender: FDA-Public Use
  Company Number: AMAG201000179

PATIENT
  Age: 73 Year
  Sex: Male
  Weight: 62 kg

DRUGS (15)
  1. FERAHEME [Suspect]
     Indication: IRON DEFICIENCY ANAEMIA
     Dosage: 510 MG, SINGLE, INTRAVENOUS
     Route: 042
  2. FERAHEME [Suspect]
     Dosage: 510 MG, SINGLE, INTRAVENOUS
     Route: 042
     Dates: start: 20100322, end: 20100322
  3. ALLOPURINOL [Concomitant]
  4. AMIODARONE (AMIODARONE HYDROCHLORIDE) [Concomitant]
  5. BARACLUDE [Concomitant]
  6. DIATX (CYANOCOBALAMIN, FOLIC ACID, PYRIDOXINE) [Concomitant]
  7. EPOGEN [Concomitant]
  8. EXFORGE (AMLODIPINE BESILATE, VALSARTAN) [Concomitant]
  9. FOSRENOL [Concomitant]
  10. PHOSLO [Concomitant]
  11. PLAVIX [Concomitant]
  12. TUMS EXTRA STRENGTH (CALCIUM CARBONATE) [Concomitant]
  13. ACETAMINOPHEN [Concomitant]
  14. ZEMPLAR [Concomitant]
  15. ZETIA [Concomitant]

REACTIONS (7)
  - COUGH [None]
  - DYSPNOEA [None]
  - FEELING HOT [None]
  - HYPOTENSION [None]
  - MALAISE [None]
  - PRURITUS [None]
  - RESTLESSNESS [None]
